FAERS Safety Report 20680216 (Version 1)
Quarter: 2022Q2

REPORT INFORMATION
  Report Type: Spontaneous
  Country: US (occurrence: None)
  Receive Date: 20220405
  Receipt Date: 20220405
  Transmission Date: 20220721
  Serious: No
  Sender: FDA-Public Use
  Company Number: None

PATIENT
  Age: 22 Year
  Sex: Female
  Weight: 49.5 kg

DRUGS (1)
  1. DESOGESTREL AND ETHINYL ESTRADIOL AND ETHINYL ESTRADIOL [Suspect]
     Active Substance: DESOGESTREL\ETHINYL ESTRADIOL
     Indication: Product used for unknown indication
     Dosage: OTHER QUANTITY : 28 TABLET(S)?FREQUENCY : DAILY?
     Route: 048
     Dates: start: 20220311, end: 20220316

REACTIONS (4)
  - Nausea [None]
  - Vomiting [None]
  - Presyncope [None]
  - Product substitution issue [None]

NARRATIVE: CASE EVENT DATE: 20220318
